FAERS Safety Report 4562459-9 (Version None)
Quarter: 2005Q1

REPORT INFORMATION
  Report Type: 
  Country: None (occurrence: None)
  Receive Date: 20050121
  Receipt Date: 20041231
  Transmission Date: 20050727
  Serious: Yes (Death, Other)
  Sender: FDA-Public Use
  Company Number: CA_041107429

PATIENT
  Age: 66 Year
  Sex: Male
  Weight: 98 kg

DRUGS (15)
  1. XIGRIS [Suspect]
     Indication: SEPSIS
     Dosage: 24 UG/KG/HR
     Dates: start: 20041030
  2. TAZOCIN [Concomitant]
  3. ZANTAC [Concomitant]
  4. VANCOMYCIN [Concomitant]
  5. SOLU-CORTEF [Concomitant]
  6. NEUPOGEN [Concomitant]
  7. ALLOPURINOL [Concomitant]
  8. LEVOPHED [Concomitant]
  9. CIPROFLOXACIN HCL [Concomitant]
  10. FLUCONAZOLE [Concomitant]
  11. TYLENOL [Concomitant]
  12. MORPHINE [Concomitant]
  13. VERSED [Concomitant]
  14. PANTOPRAZOLE SODIUM [Concomitant]
  15. VASOPRESSIN INJECTION [Concomitant]

REACTIONS (5)
  - CARDIAC ARREST [None]
  - DISSEMINATED INTRAVASCULAR COAGULATION [None]
  - GENERAL PHYSICAL HEALTH DETERIORATION [None]
  - MYOCARDIAL INFARCTION [None]
  - SEPTIC SHOCK [None]
